FAERS Safety Report 23485955 (Version 1)
Quarter: 2024Q1

REPORT INFORMATION
  Report Type: Spontaneous
  Country: PT (occurrence: None)
  Receive Date: 20240206
  Receipt Date: 20240206
  Transmission Date: 20240410
  Serious: Yes (Death)
  Sender: FDA-Public Use
  Company Number: PT-ROCHE-3498008

PATIENT
  Age: 57 Year
  Sex: Male

DRUGS (1)
  1. OCRELIZUMAB [Suspect]
     Active Substance: OCRELIZUMAB
     Indication: Primary progressive multiple sclerosis
     Dosage: DOSE 2 ON 23/OCT/2023
     Route: 065
     Dates: start: 20231009

REACTIONS (2)
  - Respiratory tract infection [Fatal]
  - Pneumonia [Fatal]
